FAERS Safety Report 6032711-9 (Version None)
Quarter: 2009Q1

REPORT INFORMATION
  Report Type: 
  Country: None (occurrence: None)
  Receive Date: 20090107
  Receipt Date: 20081223
  Transmission Date: 20090719
  Serious: Yes (Hospitalization)
  Sender: FDA-Public Use
  Company Number: SPV1-2008-02831

PATIENT
  Age: 78 Year
  Sex: Male

DRUGS (1)
  1. FOSRENOL [Suspect]
     Dosage: 1000 MG, WITH MEALS, ORAL
     Route: 048
     Dates: start: 20080901

REACTIONS (1)
  - VASCULAR GRAFT [None]
